FAERS Safety Report 17203393 (Version 2)
Quarter: 2019Q4

REPORT INFORMATION
  Report Type: Spontaneous
  Country: FR (occurrence: FR)
  Receive Date: 20191226
  Receipt Date: 20191230
  Transmission Date: 20200122
  Serious: Yes (Disabling)
  Sender: FDA-Public Use
  Company Number: FR-MYLANLABS-2019M1126571

PATIENT
  Age: 72 Year
  Sex: Female

DRUGS (21)
  1. FEMARA [Suspect]
     Active Substance: LETROZOLE
     Indication: BREAST CANCER
     Dosage: 2.5 MILLIGRAM, QD
     Route: 048
     Dates: start: 200312, end: 201211
  2. DULOXETINE. [Concomitant]
     Active Substance: DULOXETINE
     Indication: NEURALGIA
     Dosage: 1-0-0
     Route: 048
  3. EPIRUBICIN [Suspect]
     Active Substance: EPIRUBICIN
     Indication: BREAST CANCER
     Dosage: NON RENSEIGN?E
     Route: 042
     Dates: start: 19910621, end: 19980211
  4. TAMOXIFEN [Suspect]
     Active Substance: TAMOXIFEN
     Dosage: 20 MILLIGRAM, QD
     Dates: start: 199909
  5. CYCLOPHOSPHAMIDE. [Suspect]
     Active Substance: CYCLOPHOSPHAMIDE
     Indication: BREAST CANCER
     Dosage: NON RENSEIGN?E
     Route: 042
     Dates: start: 19910621, end: 19980211
  6. PREDNISONE. [Concomitant]
     Active Substance: PREDNISONE
     Indication: CRYOGLOBULINAEMIA
     Dosage: 10 MILLIGRAM, QD
     Route: 048
  7. HALAVEN [Suspect]
     Active Substance: ERIBULIN MESYLATE
     Indication: BREAST CANCER
     Dosage: 2.15 MILLIGRAM, CYCLE
     Route: 042
     Dates: start: 20190212, end: 20190702
  8. ENDOXAN                            /00021101/ [Suspect]
     Active Substance: CYCLOPHOSPHAMIDE
     Indication: BREAST CANCER
     Dosage: 100 MG PUIS 50 MG/JOUR
     Route: 048
     Dates: start: 201703, end: 201801
  9. AROMASINE [Suspect]
     Active Substance: EXEMESTANE
     Indication: BREAST CANCER
     Dosage: 25 MILLIGRAM, QD
     Route: 048
     Dates: start: 200210, end: 200302
  10. XELODA [Suspect]
     Active Substance: CAPECITABINE
     Indication: PRODUCT USED FOR UNKNOWN INDICATION
     Dosage: NON RENSEIGN?E
     Route: 042
     Dates: start: 200302, end: 200312
  11. ARIMIDEX [Suspect]
     Active Substance: ANASTROZOLE
     Indication: BREAST CANCER
     Dosage: UNK
     Dates: start: 200106, end: 200210
  12. PACLITAXEL. [Suspect]
     Active Substance: PACLITAXEL
     Indication: BREAST CANCER
     Dosage: NON RENSEIGN?E
     Route: 042
     Dates: start: 201402, end: 201411
  13. TAMOXIFEN [Suspect]
     Active Substance: TAMOXIFEN
     Indication: BREAST CANCER
     Dosage: 40 MILLIGRAM, QD
     Dates: start: 199201, end: 199909
  14. TAMOXIFEN [Suspect]
     Active Substance: TAMOXIFEN
     Dosage: 40 MILLIGRAM, QD
     Dates: start: 199701
  15. NAVELBINE [Suspect]
     Active Substance: VINORELBINE TARTRATE
     Indication: BREAST CANCER
     Dosage: NON RENSEIGN?E
     Route: 042
     Dates: start: 200302, end: 200312
  16. IBRANCE [Suspect]
     Active Substance: PALBOCICLIB
     Indication: BREAST CANCER
     Dosage: 100 MILLIGRAM, QD
     Dates: start: 201801
  17. LEVOTHYROX [Concomitant]
     Active Substance: LEVOTHYROXINE
     Indication: HYPOTHYROIDISM
     Dosage: 1-0-0
     Route: 048
     Dates: start: 201405
  18. FASLODEX [Suspect]
     Active Substance: FULVESTRANT
     Indication: BREAST CANCER
     Dosage: NON RENSEIGN?E
     Route: 030
     Dates: start: 201801, end: 201902
  19. FLUOROURACIL. [Suspect]
     Active Substance: FLUOROURACIL
     Indication: BREAST CANCER
     Dosage: NON RENSEIGN?E
     Route: 042
     Dates: start: 19910621, end: 19980211
  20. FEMARA [Suspect]
     Active Substance: LETROZOLE
     Dosage: UNK
     Dates: start: 201411, end: 201703
  21. GABAPENTINE [Concomitant]
     Active Substance: GABAPENTIN
     Indication: NEURALGIA
     Dosage: 2-2-3
     Route: 048

REACTIONS (2)
  - Neuropathy peripheral [Not Recovered/Not Resolved]
  - Trigger finger [Not Recovered/Not Resolved]

NARRATIVE: CASE EVENT DATE: 201807
